FAERS Safety Report 13802292 (Version 3)
Quarter: 2017Q3

REPORT INFORMATION
  Report Type: Spontaneous
  Country: US (occurrence: US)
  Receive Date: 20170727
  Receipt Date: 20170807
  Transmission Date: 20171127
  Serious: No
  Sender: FDA-Public Use
  Company Number: US-BIOMARINAP-US-2017-114821

PATIENT
  Age: 5 Year
  Sex: Female
  Weight: 18.8 kg

DRUGS (1)
  1. BRINEURA [Suspect]
     Active Substance: CERLIPONASE ALFA
     Indication: NEURONAL CEROID LIPOFUSCINOSIS
     Dosage: 300 MG, QOW
     Route: 037
     Dates: start: 20170712

REACTIONS (10)
  - Muscle twitching [Recovering/Resolving]
  - Lack of spontaneous speech [Recovering/Resolving]
  - Vision blurred [Recovering/Resolving]
  - Fatigue [Recovering/Resolving]
  - Drooling [Recovering/Resolving]
  - Decreased activity [Recovering/Resolving]
  - Hypophagia [Recovering/Resolving]
  - Lethargy [Recovering/Resolving]
  - Tongue movement disturbance [Recovering/Resolving]
  - Irritability [Recovering/Resolving]

NARRATIVE: CASE EVENT DATE: 20170717
